FAERS Safety Report 12861127 (Version 4)
Quarter: 2017Q2

REPORT INFORMATION
  Report Type: Spontaneous
  Country: SI (occurrence: SI)
  Receive Date: 20161019
  Receipt Date: 20170530
  Transmission Date: 20170830
  Serious: Yes (Hospitalization, Other)
  Sender: FDA-Public Use
  Company Number: PHHY2016SI142747

PATIENT
  Age: 52 Year
  Sex: Female

DRUGS (1)
  1. GILENYA [Suspect]
     Active Substance: FINGOLIMOD HYDROCHLORIDE
     Indication: MULTIPLE SCLEROSIS
     Dosage: 0.5 MG, QD
     Route: 048
     Dates: start: 201509, end: 20160929

REACTIONS (7)
  - Multiple sclerosis relapse [Unknown]
  - Overdose [Recovered/Resolved]
  - Optic neuritis [Unknown]
  - Hypersomnia [Recovered/Resolved]
  - Musculoskeletal injury [Recovered/Resolved]
  - Suicide attempt [Recovered/Resolved]
  - Expanded disability status scale score increased [Recovering/Resolving]

NARRATIVE: CASE EVENT DATE: 201609
